FAERS Safety Report 4516417-0 (Version None)
Quarter: 2004Q4

REPORT INFORMATION
  Report Type: 
  Country: None (occurrence: None)
  Receive Date: 20041202
  Receipt Date: 20040504
  Transmission Date: 20050328
  Serious: No
  Sender: FDA-Public Use
  Company Number: US-GLAXOSMITHKLINE-A0509436A

PATIENT
  Age: 65 Year
  Sex: Female

DRUGS (3)
  1. AUGMENTIN '125' [Suspect]
     Indication: LOWER RESPIRATORY TRACT INFECTION
     Dosage: 2000MG TWICE PER DAY
     Route: 048
     Dates: start: 20040501, end: 20040503
  2. ST. JOHN'S WORT [Concomitant]
  3. MULTI-VITAMINS [Concomitant]

REACTIONS (4)
  - ERYTHEMA [None]
  - EYE SWELLING [None]
  - FATIGUE [None]
  - SWELLING FACE [None]
